FAERS Safety Report 19173646 (Version 1)
Quarter: 2021Q2

REPORT INFORMATION
  Report Type: Report from Study
  Country: None (occurrence: BR)
  Receive Date: 20210423
  Receipt Date: 20210423
  Transmission Date: 20210717
  Serious: Yes (Other)
  Sender: FDA-Public Use
  Company Number: BR-ABBVIE-21K-020-3869076-00

PATIENT
  Sex: Female

DRUGS (1)
  1. HUMIRA [Suspect]
     Active Substance: ADALIMUMAB
     Indication: HIDRADENITIS
     Dosage: UNSPECIFIED DOSE
     Route: 058
     Dates: start: 20201111

REACTIONS (5)
  - Drug ineffective [Unknown]
  - Myalgia [Unknown]
  - Injury [Unknown]
  - Inflammation of wound [Unknown]
  - Fatigue [Unknown]
